FAERS Safety Report 13120301 (Version 2)
Quarter: 2017Q4

REPORT INFORMATION
  Report Type: Spontaneous
  Country: FR (occurrence: FR)
  Receive Date: 20170117
  Receipt Date: 20171103
  Transmission Date: 20180320
  Serious: Yes (Life-Threatening, Other)
  Sender: FDA-Public Use
  Company Number: FR-LUPIN PHARMACEUTICALS INC.-2017-00301

PATIENT
  Age: 31 Year
  Sex: Female
  Weight: 45 kg

DRUGS (5)
  1. MIDAZOLAM [Concomitant]
     Active Substance: MIDAZOLAM HYDROCHLORIDE
     Indication: THERAPEUTIC HYPOTHERMIA
     Dosage: UNK
     Route: 042
  2. CLONAZEPAM. [Concomitant]
     Active Substance: CLONAZEPAM
     Indication: PRODUCT USED FOR UNKNOWN INDICATION
     Dosage: 1 MG, UNK
     Route: 065
  3. CISATRACURIUM. [Concomitant]
     Active Substance: CISATRACURIUM
     Indication: THERAPEUTIC HYPOTHERMIA
     Dosage: UNK
     Route: 042
  4. MORPHINE [Concomitant]
     Active Substance: MORPHINE
     Indication: THERAPEUTIC HYPOTHERMIA
     Dosage: UNK
     Route: 042
  5. LEVETIRACETAM. [Suspect]
     Active Substance: LEVETIRACETAM
     Indication: GENERALISED NON-CONVULSIVE EPILEPSY
     Dosage: 750 MG, BID
     Route: 042

REACTIONS (5)
  - Prescribed overdose [Recovering/Resolving]
  - Coma [Recovering/Resolving]
  - Condition aggravated [Recovering/Resolving]
  - Dose calculation error [Unknown]
  - Electroencephalogram abnormal [Recovering/Resolving]
